FAERS Safety Report 4274431-7 (Version None)
Quarter: 2004Q1

REPORT INFORMATION
  Report Type: 
  Country: None (occurrence: None)
  Receive Date: 20040120
  Receipt Date: 20030221
  Transmission Date: 20041129
  Serious: Yes (Other)
  Sender: FDA-Public Use
  Company Number: US-BRISTOL-MYERS SQUIBB COMPANY-12193397

PATIENT

DRUGS (2)
  1. IFEX [Suspect]
  2. MESNA [Concomitant]

REACTIONS (1)
  - CYSTITIS HAEMORRHAGIC [None]
